FAERS Safety Report 6262354-3 (Version None)
Quarter: 2009Q3

REPORT INFORMATION
  Report Type: 
  Country: None (occurrence: None)
  Receive Date: 20090709
  Receipt Date: 20090701
  Transmission Date: 20100115
  Serious: Yes (Hospitalization)
  Sender: FDA-Public Use
  Company Number: PHHO2009DE07501

PATIENT
  Sex: Female
  Weight: 72 kg

DRUGS (7)
  1. RAD 666 RAD+TAB [Suspect]
     Indication: LIVER TRANSPLANT
     Dosage: 8 MG/DAY
     Route: 048
     Dates: start: 20090310
  2. CYCLOSPORINE [Suspect]
     Indication: LIVER TRANSPLANT
  3. BASILIXIMAB [Suspect]
     Indication: LIVER TRANSPLANT
     Dosage: UNK
  4. PROGRAF [Concomitant]
     Indication: LIVER TRANSPLANT
     Dosage: UNK
     Dates: end: 20090618
  5. PEGINTERFERON ALFA-2A [Concomitant]
     Indication: HEPATITIS C VIRUS TEST
     Dosage: UNK
     Dates: start: 20090612
  6. RIBAVIRIN [Concomitant]
     Indication: HEPATITIS C VIRUS TEST
     Dosage: UNK
     Dates: start: 20090612
  7. AMPICILLIN W/SULBACTAM [Concomitant]
     Dosage: UNK
     Dates: start: 20090615

REACTIONS (8)
  - ALANINE AMINOTRANSFERASE INCREASED [None]
  - ASPARTATE AMINOTRANSFERASE INCREASED [None]
  - C-REACTIVE PROTEIN INCREASED [None]
  - CHOLANGITIS [None]
  - CITROBACTER INFECTION [None]
  - GAMMA-GLUTAMYLTRANSFERASE INCREASED [None]
  - PYREXIA [None]
  - TRANSAMINASES INCREASED [None]
